FAERS Safety Report 15864701 (Version 1)
Quarter: 2019Q1

REPORT INFORMATION
  Report Type: Spontaneous
  Country: CH (occurrence: CH)
  Receive Date: 20190124
  Receipt Date: 20190124
  Transmission Date: 20190417
  Serious: Yes (Hospitalization)
  Sender: FDA-Public Use
  Company Number: CH-B. BRAUN MEDICAL INC.-2061730

PATIENT
  Age: 85 Year
  Sex: Male

DRUGS (12)
  1. TICAGRELOR. [Concomitant]
     Active Substance: TICAGRELOR
  2. ASPIRIN. [Concomitant]
     Active Substance: ASPIRIN
  3. ATORVASTATIN [Concomitant]
     Active Substance: ATORVASTATIN
  4. HEPARIN SODIUM IN DEXTROSE [Suspect]
     Active Substance: HEPARIN SODIUM
  5. ENOXAPARIN [Concomitant]
     Active Substance: ENOXAPARIN
  6. HYDROMORPHONE [Concomitant]
     Active Substance: HYDROMORPHONE
  7. SPIRONOLACTONE. [Concomitant]
     Active Substance: SPIRONOLACTONE
  8. METOPROLOL TARTRATE. [Concomitant]
     Active Substance: METOPROLOL TARTRATE
  9. AMLODIPINE [Concomitant]
     Active Substance: AMLODIPINE BESYLATE
  10. PARACETAMOL [Concomitant]
     Active Substance: ACETAMINOPHEN
  11. PANTOPRAZOLE [Concomitant]
     Active Substance: PANTOPRAZOLE
  12. QUETIAPINE. [Concomitant]
     Active Substance: QUETIAPINE

REACTIONS (2)
  - Rash maculo-papular [None]
  - Petechiae [None]
